FAERS Safety Report 9997870 (Version 2)
Quarter: 2014Q1

REPORT INFORMATION
  Report Type: Spontaneous
  Country: JP (occurrence: JP)
  Receive Date: 20140311
  Receipt Date: 20140311
  Transmission Date: 20141002
  Serious: Yes (Other)
  Sender: FDA-Public Use
  Company Number: JP-PFIZER INC-2014039728

PATIENT
  Age: 65 Year
  Sex: Male

DRUGS (7)
  1. OLMETEC [Suspect]
     Indication: HYPERTENSION
     Dosage: 20 MG, 2X/DAY
     Route: 065
     Dates: start: 20131231
  2. AMLODIN [Suspect]
     Dosage: 10 MG, UNK
     Route: 065
  3. ARTIST [Suspect]
     Indication: HYPERTENSION
     Dosage: 10 MG, DAILY
     Route: 065
  4. CRAVIT [Suspect]
     Indication: PNEUMONIA
     Dosage: 500 MG, DAILY
     Route: 065
     Dates: start: 20140105, end: 20140111
  5. URSODEOXYCHOLIC ACID [Concomitant]
     Dosage: UNK
     Route: 065
  6. REBAMIPIDE [Concomitant]
     Dosage: UNK
  7. ZOSYN [Concomitant]
     Dosage: UNK

REACTIONS (5)
  - Red blood cell count decreased [Recovered/Resolved]
  - Blood lactate dehydrogenase increased [Recovered/Resolved]
  - Haemoglobin decreased [Recovered/Resolved]
  - Haematocrit decreased [Recovered/Resolved]
  - Pneumonia [Recovered/Resolved]
